FAERS Safety Report 21555790 (Version 1)
Quarter: 2022Q4

REPORT INFORMATION
  Report Type: Spontaneous
  Country: NL (occurrence: NL)
  Receive Date: 20221104
  Receipt Date: 20221104
  Transmission Date: 20230113
  Serious: Yes (Other)
  Sender: FDA-Public Use
  Company Number: None

PATIENT
  Sex: Female
  Weight: 89 kg

DRUGS (2)
  1. LEVOTHYROXINE SODIUM [Suspect]
     Active Substance: LEVOTHYROXINE SODIUM
     Indication: Hypothyroidism
     Dosage: 175 MG, BRAND NAME NOT SPECIFIED, UNIT DOSE : 175 MG, THERAPY END DATE : ASKU
     Route: 065
     Dates: start: 20000101
  2. SAXENDA [Suspect]
     Active Substance: LIRAGLUTIDE
     Indication: Product used for unknown indication
     Dosage: 1.8 ML DAILY; 1.8 ML ONCE A DAY, LIRAGLUTIDE INJVLST 6MG/ML / SAXENDA INJVLST 6MG/ML PEN 3ML, THERAP
     Route: 065
     Dates: start: 20220704

REACTIONS (4)
  - Hyperthyroidism [Not Recovered/Not Resolved]
  - Weight loss poor [Not Recovered/Not Resolved]
  - Palpitations [Not Recovered/Not Resolved]
  - Restlessness [Not Recovered/Not Resolved]
